FAERS Safety Report 7604295-2 (Version None)
Quarter: 2011Q3

REPORT INFORMATION
  Report Type: 
  Country: None (occurrence: None)
  Receive Date: 20110712
  Receipt Date: 20110628
  Transmission Date: 20111222
  Serious: Yes (Other)
  Sender: FDA-Public Use
  Company Number: PHHY2011AU58624

PATIENT
  Sex: Male
  Weight: 175 kg

DRUGS (2)
  1. CYCLOSPORINE [Suspect]
     Indication: APLASTIC ANAEMIA
     Dosage: UNK UKN, UNK
  2. EXJADE [Suspect]
     Indication: CHELATION THERAPY
     Dosage: 1 G, BD
     Route: 048

REACTIONS (8)
  - DEPRESSION [None]
  - HYPERTENSION [None]
  - TRANSFERRIN SATURATION DECREASED [None]
  - WHITE BLOOD CELL COUNT DECREASED [None]
  - ALANINE AMINOTRANSFERASE INCREASED [None]
  - TYPE 2 DIABETES MELLITUS [None]
  - BLOOD CREATININE INCREASED [None]
  - SERUM FERRITIN DECREASED [None]
